FAERS Safety Report 15254676 (Version 1)
Quarter: 2018Q3

REPORT INFORMATION
  Report Type: Spontaneous
  Country: US (occurrence: US)
  Receive Date: 20180808
  Receipt Date: 20180808
  Transmission Date: 20181010
  Serious: No
  Sender: FDA-Public Use
  Company Number: US-IPSEN BIOPHARMACEUTICALS, INC.-2018-11476

PATIENT
  Age: 72 Year
  Sex: Female

DRUGS (13)
  1. VALSARTAN. [Concomitant]
     Active Substance: VALSARTAN
  2. XERMELO [Suspect]
     Active Substance: TELOTRISTAT ETHYL
     Indication: CARCINOID TUMOUR OF THE DUODENUM
  3. CARBOPLATIN. [Concomitant]
     Active Substance: CARBOPLATIN
  4. BENZONATATE. [Concomitant]
     Active Substance: BENZONATATE
  5. POTASSIMIN [Concomitant]
  6. XERMELO [Suspect]
     Active Substance: TELOTRISTAT ETHYL
     Indication: CARCINOID SYNDROME
     Route: 048
     Dates: start: 20180430
  7. LASIX [Concomitant]
     Active Substance: FUROSEMIDE
  8. CREON [Concomitant]
     Active Substance: PANCRELIPASE AMYLASE\PANCRELIPASE LIPASE\PANCRELIPASE PROTEASE
  9. ALIMTA [Concomitant]
     Active Substance: PEMETREXED DISODIUM
  10. SOMATULINE [Suspect]
     Active Substance: LANREOTIDE ACETATE
     Indication: PRODUCT USED FOR UNKNOWN INDICATION
     Dosage: NOT REPORTED
     Route: 065
  11. COQ10 [Concomitant]
     Active Substance: UBIDECARENONE
  12. HYOSYNE [Concomitant]
     Active Substance: HYOSCYAMINE SULFATE
  13. KEYTRUDA [Concomitant]
     Active Substance: PEMBROLIZUMAB

REACTIONS (2)
  - Chemotherapy [Unknown]
  - Constipation [Unknown]

NARRATIVE: CASE EVENT DATE: 2018
